FAERS Safety Report 24681909 (Version 2)
Quarter: 2024Q4

REPORT INFORMATION
  Report Type: Spontaneous
  Country: DE (occurrence: DE)
  Receive Date: 20241130
  Receipt Date: 20241218
  Transmission Date: 20250115
  Serious: Yes (Other)
  Sender: ALEXION PHARMACEUTICALS
  Company Number: DE-AstraZeneca-CH-00749770A

PATIENT
  Age: 60 Year
  Weight: 150 kg

DRUGS (14)
  1. TEZSPIRE [Suspect]
     Active Substance: TEZEPELUMAB-EKKO
     Indication: Asthma
     Dosage: 210 MILLIGRAM, Q4W
  2. TEZSPIRE [Suspect]
     Active Substance: TEZEPELUMAB-EKKO
     Dosage: 210 MILLIGRAM, Q4W
     Route: 058
  3. TEZSPIRE [Suspect]
     Active Substance: TEZEPELUMAB-EKKO
     Dosage: 210 MILLIGRAM, Q4W
  4. TEZSPIRE [Suspect]
     Active Substance: TEZEPELUMAB-EKKO
     Dosage: 210 MILLIGRAM, Q4W
     Route: 058
  5. AMOXICILLIN\CLAVULANATE POTASSIUM [Concomitant]
     Active Substance: AMOXICILLIN\CLAVULANATE POTASSIUM
  6. PREDNISOLONE [Concomitant]
     Active Substance: PREDNISOLONE
  7. FENOTEROL HYDROBROMIDE\IPRATROPIUM BROMIDE [Concomitant]
     Active Substance: FENOTEROL HYDROBROMIDE\IPRATROPIUM BROMIDE
  8. BECLOMETHASONE DIPROPIONATE [Concomitant]
     Active Substance: BECLOMETHASONE DIPROPIONATE
     Dosage: 0.4 MILLIGRAM
  9. SPIRIVA RESPIMAT [Concomitant]
     Active Substance: TIOTROPIUM BROMIDE
  10. TERBUTALINE [Concomitant]
     Active Substance: TERBUTALINE
  11. CROMOLYN SODIUM\REPROTEROL HYDROCHLORIDE [Concomitant]
     Active Substance: CROMOLYN SODIUM\REPROTEROL HYDROCHLORIDE
  12. SALBUHEXAL [Concomitant]
     Active Substance: ALBUTEROL
  13. FOSTER [Concomitant]
     Active Substance: BECLOMETHASONE\FORMOTEROL
  14. HYDROCORTISONE [Concomitant]
     Active Substance: HYDROCORTISONE
     Dosage: 10 MILLIGRAM

REACTIONS (7)
  - Herpes zoster infection neurological [Recovered/Resolved]
  - Encephalitis [Recovered/Resolved]
  - Bronchitis [Unknown]
  - Cough [Unknown]
  - Chills [Unknown]
  - Productive cough [Unknown]
  - Dyspnoea [Unknown]
